FAERS Safety Report 20452052 (Version 4)
Quarter: 2022Q1

REPORT INFORMATION
  Report Type: Report from Study
  Country: US (occurrence: US)
  Receive Date: 20220209
  Receipt Date: 20220309
  Transmission Date: 20220423
  Serious: Yes (Hospitalization, Other)
  Sender: FDA-Public Use
  Company Number: US-ABBVIE-22K-163-4270687-00

PATIENT
  Age: 63 Year
  Sex: Male
  Weight: 68.100 kg

DRUGS (2)
  1. DUOPA [Suspect]
     Active Substance: CARBIDOPA\LEVODOPA
     Indication: Parkinson^s disease
     Dosage: 4.63-20MG/ML?MORNING DOSE: 11ML, CONTINUOUS DOSE: 3.1ML/HR, EXTRA DOSE: 1 ML
     Route: 050
     Dates: start: 20210802
  2. DUOPA [Suspect]
     Active Substance: CARBIDOPA\LEVODOPA

REACTIONS (13)
  - SARS-CoV-2 test positive [Recovering/Resolving]
  - Oxygen saturation abnormal [Not Recovered/Not Resolved]
  - Neuroleptic malignant syndrome [Not Recovered/Not Resolved]
  - Restrictive pulmonary disease [Not Recovered/Not Resolved]
  - Sepsis [Recovering/Resolving]
  - COVID-19 [Recovering/Resolving]
  - Incorrect dose administered [Unknown]
  - Muscle rigidity [Recovered/Resolved]
  - Muscle rigidity [Recovering/Resolving]
  - Pneumonia aspiration [Recovering/Resolving]
  - Parkinson^s disease [Not Recovered/Not Resolved]
  - Dysphagia [Not Recovered/Not Resolved]
  - Device occlusion [Unknown]

NARRATIVE: CASE EVENT DATE: 20220127
